FAERS Safety Report 10167252 (Version 1)
Quarter: 2014Q2

REPORT INFORMATION
  Report Type: Spontaneous
  Country: US (occurrence: US)
  Receive Date: 20140512
  Receipt Date: 20140512
  Transmission Date: 20141212
  Serious: No
  Sender: FDA-Public Use
  Company Number: US-PFIZER INC-2014127418

PATIENT
  Sex: Female
  Weight: 70.3 kg

DRUGS (10)
  1. LYRICA [Suspect]
     Indication: FIBROMYALGIA
     Dosage: 300 MG, 3X/DAY
     Route: 048
  2. LYRICA [Suspect]
     Dosage: 50 MG, 1X/DAY
     Route: 048
     Dates: start: 20140506
  3. NORCO [Concomitant]
     Indication: PAIN
     Dosage: 10 MG, UNK
  4. ZANAFLEX [Concomitant]
     Indication: MUSCLE RELAXANT THERAPY
     Dosage: UNK
  5. OXYCONTIN [Concomitant]
     Indication: PAIN
     Dosage: UNK
  6. KLONOPIN [Concomitant]
     Indication: DEPRESSION
     Dosage: UNK
  7. DUEXIS [Concomitant]
     Indication: PAIN
     Dosage: UNK
  8. WELLBUTRIN [Concomitant]
     Indication: DEPRESSION
     Dosage: UNK
  9. ZOLOFT [Concomitant]
     Indication: DEPRESSION
     Dosage: UNK
  10. SYNTHROID [Concomitant]
     Indication: THYROID DISORDER
     Dosage: UNK

REACTIONS (2)
  - Intentional product misuse [Unknown]
  - Weight increased [Unknown]
